FAERS Safety Report 9649669 (Version 1)
Quarter: 2013Q4

REPORT INFORMATION
  Report Type: Spontaneous
  Country: US (occurrence: US)
  Receive Date: 20131028
  Receipt Date: 20131028
  Transmission Date: 20140711
  Serious: Yes (Death)
  Sender: FDA-Public Use
  Company Number: US-TMC-CABO-13003537

PATIENT
  Age: 71 Year
  Sex: Male

DRUGS (2)
  1. COMETRIQ [Suspect]
     Indication: PROSTATE CANCER
     Dosage: 20 MG, QD
     Route: 048
     Dates: start: 20130821, end: 20130913
  2. COMETRIQ [Suspect]
     Dosage: UNK
     Dates: start: 20131001, end: 20131020

REACTIONS (2)
  - Death [Fatal]
  - Off label use [Unknown]
